FAERS Safety Report 25544174 (Version 1)
Quarter: 2025Q3

REPORT INFORMATION
  Report Type: Spontaneous
  Country: CN (occurrence: CN)
  Receive Date: 20250711
  Receipt Date: 20250711
  Transmission Date: 20251021
  Serious: Yes (Hospitalization, Other)
  Sender: BRACCO
  Company Number: CN-BRACCO-2025CN04540

PATIENT
  Age: 58 Year
  Sex: Female

DRUGS (1)
  1. IOMERON [Suspect]
     Active Substance: IOMEPROL
     Indication: Angiocardiogram
     Route: 013
     Dates: start: 20250617, end: 20250617

REACTIONS (5)
  - Cardiac asthma [Recovering/Resolving]
  - Chest discomfort [Recovering/Resolving]
  - Stridor [Recovering/Resolving]
  - Left ventricular failure [Recovering/Resolving]
  - Contrast media allergy [Recovering/Resolving]

NARRATIVE: CASE EVENT DATE: 20250617
